FAERS Safety Report 23213726 (Version 2)
Quarter: 2023Q4

REPORT INFORMATION
  Report Type: Report from Study
  Country: KR (occurrence: KR)
  Receive Date: 20231121
  Receipt Date: 20231129
  Transmission Date: 20240110
  Serious: Yes (Hospitalization)
  Sender: FDA-Public Use
  Company Number: KR-GILEAD-2023-0651211

PATIENT
  Sex: Female
  Weight: 55.2 kg

DRUGS (33)
  1. SACITUZUMAB GOVITECAN-HZIY [Suspect]
     Active Substance: SACITUZUMAB GOVITECAN-HZIY
     Indication: Triple negative breast cancer
     Dosage: 580 MG
     Route: 042
     Dates: start: 20230811, end: 20230811
  2. SACITUZUMAB GOVITECAN-HZIY [Suspect]
     Active Substance: SACITUZUMAB GOVITECAN-HZIY
     Dosage: 580 MG
     Route: 042
     Dates: start: 20230818, end: 20230818
  3. SACITUZUMAB GOVITECAN-HZIY [Suspect]
     Active Substance: SACITUZUMAB GOVITECAN-HZIY
     Dosage: 580 MG
     Route: 042
     Dates: start: 20230901, end: 20230901
  4. SACITUZUMAB GOVITECAN-HZIY [Suspect]
     Active Substance: SACITUZUMAB GOVITECAN-HZIY
     Dosage: 580 MG
     Route: 042
     Dates: start: 20230908, end: 20230908
  5. SACITUZUMAB GOVITECAN-HZIY [Suspect]
     Active Substance: SACITUZUMAB GOVITECAN-HZIY
     Dosage: 580 MG
     Route: 042
     Dates: start: 20230922, end: 20230922
  6. SACITUZUMAB GOVITECAN-HZIY [Suspect]
     Active Substance: SACITUZUMAB GOVITECAN-HZIY
     Dosage: 580 MG
     Route: 042
     Dates: start: 20231002, end: 20231002
  7. SACITUZUMAB GOVITECAN-HZIY [Suspect]
     Active Substance: SACITUZUMAB GOVITECAN-HZIY
     Dosage: 580 MG
     Route: 042
     Dates: start: 20231017, end: 20231017
  8. SACITUZUMAB GOVITECAN-HZIY [Suspect]
     Active Substance: SACITUZUMAB GOVITECAN-HZIY
     Dosage: 580 MG
     Route: 042
     Dates: start: 20231024, end: 20231024
  9. ACETAMINOPHEN [Concomitant]
     Active Substance: ACETAMINOPHEN
     Indication: Prophylaxis
     Dosage: 650 MG
     Route: 048
     Dates: start: 20230811
  10. AKYNZEO (NETUPITANT\PALONOSETRON) [Concomitant]
     Active Substance: NETUPITANT\PALONOSETRON
     Indication: Prophylaxis
     Route: 048
     Dates: start: 20230811
  11. CHLORPHENIRAMINE MALEATE [Concomitant]
     Active Substance: CHLORPHENIRAMINE MALEATE
     Indication: Prophylaxis
     Route: 042
     Dates: start: 20230811
  12. DEXAMETHASONE [Concomitant]
     Active Substance: DEXAMETHASONE
     Indication: Prophylaxis
     Route: 042
     Dates: start: 20230811
  13. DEXAMETHASONE [Concomitant]
     Active Substance: DEXAMETHASONE
     Route: 048
     Dates: start: 20231003, end: 20231005
  14. DEXAMETHASONE [Concomitant]
     Active Substance: DEXAMETHASONE
     Route: 048
     Dates: start: 20231018, end: 20231020
  15. DEXAMETHASONE [Concomitant]
     Active Substance: DEXAMETHASONE
     Route: 048
     Dates: start: 20231025, end: 20231027
  16. ONDANSETRON [Concomitant]
     Active Substance: ONDANSETRON
     Indication: Prophylaxis
     Route: 042
     Dates: start: 20230811
  17. ONDANSETRON [Concomitant]
     Active Substance: ONDANSETRON
     Route: 048
     Dates: start: 20231003, end: 20231004
  18. ONDANSETRON [Concomitant]
     Active Substance: ONDANSETRON
     Route: 048
     Dates: start: 20231018, end: 20231019
  19. ONDANSETRON [Concomitant]
     Active Substance: ONDANSETRON
     Route: 048
     Dates: start: 20231025, end: 20231026
  20. CALTEO [Concomitant]
     Indication: Supplementation therapy
     Route: 048
     Dates: start: 20230818, end: 20231001
  21. DENOSUMAB [Concomitant]
     Active Substance: DENOSUMAB
     Indication: Supplementation therapy
     Route: 058
     Dates: start: 20230818
  22. MAGNESIUM OXIDE [Concomitant]
     Active Substance: MAGNESIUM OXIDE
     Indication: Constipation
     Route: 048
     Dates: start: 20230924, end: 20231005
  23. ACETYLCYSTEINE [Concomitant]
     Active Substance: ACETYLCYSTEINE
     Indication: Productive cough
     Route: 048
     Dates: start: 20231002, end: 20231008
  24. CODAEWON FORTE [Concomitant]
     Indication: Productive cough
     Route: 048
     Dates: start: 20231002, end: 20231008
  25. FAMOTIDINE [Concomitant]
     Active Substance: FAMOTIDINE
     Indication: Prophylaxis
     Route: 048
     Dates: start: 20231003, end: 20231005
  26. FAMOTIDINE [Concomitant]
     Active Substance: FAMOTIDINE
     Route: 048
     Dates: start: 20231018, end: 20231020
  27. FAMOTIDINE [Concomitant]
     Active Substance: FAMOTIDINE
     Route: 048
     Dates: start: 20231025, end: 20231027
  28. FILGRASTIM [Concomitant]
     Active Substance: FILGRASTIM
     Indication: Neutrophil count decreased
     Dosage: 300 DOSAGE FORM
     Route: 058
     Dates: start: 20231107, end: 20231107
  29. AMBROXOL HYDROCHLORIDE [Concomitant]
     Active Substance: AMBROXOL HYDROCHLORIDE
     Indication: Prophylaxis
     Dosage: 15 MG
     Route: 042
     Dates: start: 20231108, end: 20231108
  30. LEVOFLOXACIN [Concomitant]
     Active Substance: LEVOFLOXACIN
     Indication: Prophylaxis
     Dosage: 750 MG
     Route: 042
     Dates: start: 20231108, end: 20231108
  31. TAZOPERAN [Concomitant]
     Indication: Prophylaxis
     Dosage: -1 G
     Route: 042
     Dates: start: 20231108, end: 20231108
  32. MEPERIDINE HYDROCHLORIDE [Concomitant]
     Active Substance: MEPERIDINE HYDROCHLORIDE
     Indication: Prophylaxis
     Dosage: 25 MG
     Route: 030
     Dates: start: 20231109, end: 20231109
  33. THEOBROMINE [Concomitant]
     Active Substance: THEOBROMINE

REACTIONS (1)
  - Dyspnoea [Recovered/Resolved]

NARRATIVE: CASE EVENT DATE: 20231108
